FAERS Safety Report 20872280 (Version 1)
Quarter: 2022Q2

REPORT INFORMATION
  Report Type: Spontaneous
  Country: US (occurrence: US)
  Receive Date: 20220525
  Receipt Date: 20220525
  Transmission Date: 20220721
  Serious: No
  Sender: FDA-Public Use
  Company Number: US-PFIZER INC-202200734998

PATIENT
  Age: 77 Year
  Sex: Female
  Weight: 52.16 kg

DRUGS (4)
  1. PAXLOVID [Suspect]
     Active Substance: NIRMATRELVIR\RITONAVIR
     Indication: COVID-19 treatment
     Dosage: [PF-07321332 300 MG]/[RITONAVIR 100 MG]; 2X/DAY
     Dates: start: 20220509
  2. PAXLOVID [Suspect]
     Active Substance: NIRMATRELVIR\RITONAVIR
     Indication: COVID-19
  3. IVERMECTIN [Suspect]
     Active Substance: IVERMECTIN
     Dosage: 3 ML (SHE TAKES IVERMECTIN IN THE MORNING ABOUT 8 O^CLOCK )
     Dates: start: 20220509
  4. LATANOPROST [Concomitant]
     Active Substance: LATANOPROST
     Indication: Glaucoma
     Dosage: UNK (OPTH SOL 2.5ML 0.005 PERCENT/ BOTH EYES EVERY EVENING AND SHE HAS TO TAKE BEFORE BED)
     Route: 047

REACTIONS (1)
  - Diplopia [Unknown]

NARRATIVE: CASE EVENT DATE: 20220510
